FAERS Safety Report 11695029 (Version 2)
Quarter: 2015Q4

REPORT INFORMATION
  Report Type: Spontaneous
  Country: LT (occurrence: LT)
  Receive Date: 20151103
  Receipt Date: 20151208
  Transmission Date: 20160304
  Serious: Yes (Other)
  Sender: FDA-Public Use
  Company Number: LT-ABBVIE-15P-234-1491891-00

PATIENT
  Sex: Female

DRUGS (2)
  1. COMBIVIR [Suspect]
     Active Substance: LAMIVUDINE\ZIDOVUDINE
     Indication: HIV INFECTION
     Dosage: FORM STRENGTH: 150/300 MG
     Route: 048
     Dates: start: 20090908
  2. KALETRA [Suspect]
     Active Substance: LOPINAVIR\RITONAVIR
     Indication: HIV INFECTION
     Dosage: FORM STRENGTH: 200/50 MG
     Route: 048
     Dates: start: 20090908

REACTIONS (3)
  - Exposure during pregnancy [Unknown]
  - Premature delivery [Unknown]
  - Premature rupture of membranes [Unknown]
